FAERS Safety Report 4291413-X (Version None)
Quarter: 2004Q1

REPORT INFORMATION
  Report Type: 
  Country: None (occurrence: None)
  Receive Date: 20040211
  Receipt Date: 20031230
  Transmission Date: 20041129
  Serious: No
  Sender: FDA-Public Use
  Company Number: US-BRISTOL-MYERS SQUIBB COMPANY-12466835

PATIENT
  Age: 54 Year
  Sex: Female
  Weight: 77 kg

DRUGS (1)
  1. CEFZIL [Suspect]
     Indication: BRONCHITIS
     Dosage: EXPIRATION DATE 30-NOV-2004
     Route: 048
     Dates: start: 20031229, end: 20031229

REACTIONS (6)
  - BACK PAIN [None]
  - CHEST PAIN [None]
  - CHILLS [None]
  - DRY MOUTH [None]
  - DYSGEUSIA [None]
  - TREMOR [None]
